FAERS Safety Report 15547970 (Version 1)
Quarter: 2018Q4

REPORT INFORMATION
  Report Type: Report from Study
  Country: JP (occurrence: JP)
  Receive Date: 20181024
  Receipt Date: 20181024
  Transmission Date: 20190205
  Serious: Yes (Hospitalization, Other)
  Sender: FDA-Public Use
  Company Number: JP-SA-2018SA290196

PATIENT
  Age: 32 Year
  Sex: Male

DRUGS (1)
  1. SEVELAMER HYDROCHLORIDE. [Suspect]
     Active Substance: SEVELAMER HYDROCHLORIDE
     Dosage: UNK
     Route: 048
     Dates: start: 20150105, end: 20180219

REACTIONS (3)
  - Fluid overload [Recovering/Resolving]
  - Pneumonia [Recovering/Resolving]
  - Hospitalisation [Recovering/Resolving]

NARRATIVE: CASE EVENT DATE: 20180626
